FAERS Safety Report 24268416 (Version 1)
Quarter: 2024Q3

REPORT INFORMATION
  Report Type: Other
  Country: AU (occurrence: AU)
  Receive Date: 20240830
  Receipt Date: 20240830
  Transmission Date: 20241017
  Serious: Yes (Congenital Anomaly, Other)
  Sender: LUPIN
  Company Number: AU-LUPIN HEALTHCARE (UK) LIMITED-2024-08432

PATIENT

DRUGS (3)
  1. SERTRALINE [Suspect]
     Active Substance: SERTRALINE HYDROCHLORIDE
     Indication: Product used for unknown indication
     Dosage: UNK
     Route: 064
  2. LABETALOL HYDROCHLORIDE [Suspect]
     Active Substance: LABETALOL\LABETALOL HYDROCHLORIDE
     Indication: Product used for unknown indication
     Dosage: UNK
     Route: 064
  3. METHYLDOPA [Concomitant]
     Active Substance: METHYLDOPA
     Indication: Product used for unknown indication
     Dosage: UNK
     Route: 064

REACTIONS (9)
  - Cyanosis [Unknown]
  - Hypoglycaemia neonatal [Unknown]
  - Hypothermia neonatal [Unknown]
  - Neonatal hypoxia [Unknown]
  - Neonatal respiratory distress [Unknown]
  - Neonatal tachypnoea [Unknown]
  - Stridor [Unknown]
  - Tremor neonatal [Unknown]
  - Foetal exposure during pregnancy [Unknown]
